FAERS Safety Report 9226857 (Version 1)
Quarter: 2013Q2

REPORT INFORMATION
  Report Type: Spontaneous
  Country: US (occurrence: None)
  Receive Date: 20130410
  Receipt Date: 20130410
  Transmission Date: 20140414
  Serious: Yes (Other)
  Sender: FDA-Public Use
  Company Number: USA/USA/13/0028905

PATIENT
  Age: 14 Year
  Sex: Female

DRUGS (2)
  1. GEMCITABINE [Suspect]
     Indication: SYNOVIAL SARCOMA
  2. DOCETAXEL (DOCETAXEL) [Suspect]
     Indication: SYNOVIAL SARCOMA

REACTIONS (3)
  - Recall phenomenon [None]
  - Myositis [None]
  - Compartment syndrome [None]
